FAERS Safety Report 25435836 (Version 1)
Quarter: 2025Q2

REPORT INFORMATION
  Report Type: Spontaneous
  Country: US (occurrence: None)
  Receive Date: 20250612
  Receipt Date: 20250612
  Transmission Date: 20250716
  Serious: Yes (unspecified)
  Sender: FDA-CTU
  Company Number: None

PATIENT
  Age: 69 Year
  Sex: Female
  Weight: 92.25 kg

DRUGS (13)
  1. AIMOVIG [Suspect]
     Active Substance: ERENUMAB-AOOE
     Indication: Migraine
     Route: 050
     Dates: start: 20250326, end: 20250326
  2. LEVOTHYROXINE [Concomitant]
     Active Substance: LEVOTHYROXINE
  3. ROSUVASTATIN [Concomitant]
     Active Substance: ROSUVASTATIN
  4. GABAPENTIN [Concomitant]
     Active Substance: GABAPENTIN
  5. SERTRALINE [Concomitant]
     Active Substance: SERTRALINE HYDROCHLORIDE
  6. UBRELVY [Concomitant]
     Active Substance: UBROGEPANT
  7. METOCLOPRAMIDE [Concomitant]
     Active Substance: METOCLOPRAMIDE
  8. FISH OIL [Concomitant]
     Active Substance: FISH OIL
  9. CRANBERRY [Concomitant]
     Active Substance: CRANBERRY
  10. COENZYME Q10 [Concomitant]
     Active Substance: DIETARY SUPPLEMENT\UBIDECARENONE
  11. CALCIUM [Concomitant]
     Active Substance: CALCIUM
  12. TRIPLE MAGNESIUM [Concomitant]
  13. VITAMIN D [Concomitant]
     Active Substance: VITAMIN D NOS

REACTIONS (4)
  - Bowel movement irregularity [None]
  - Faeces hard [None]
  - Nausea [None]
  - Constipation [None]

NARRATIVE: CASE EVENT DATE: 20250330
